FAERS Safety Report 22353115 (Version 1)
Quarter: 2023Q2

REPORT INFORMATION
  Report Type: Spontaneous
  Country: US (occurrence: US)
  Receive Date: 20230523
  Receipt Date: 20230523
  Transmission Date: 20230721
  Serious: Yes (Other)
  Sender: FDA-Public Use
  Company Number: US-SPECGX-T202301174

PATIENT
  Sex: Male
  Weight: 90 kg

DRUGS (7)
  1. METHYLPHENIDATE HYDROCHLORIDE [Suspect]
     Active Substance: METHYLPHENIDATE HYDROCHLORIDE
     Indication: Attention deficit hyperactivity disorder
     Dosage: 20 MILLIGRAM, QD (ONE IN THE MORNING AND ONE IN THE EVENING)
     Route: 048
  2. VYNDAMAX [Suspect]
     Active Substance: TAFAMIDIS
     Indication: Product used for unknown indication
     Dosage: 61 MILLIGRAM, QD
     Route: 048
  3. ALLOPURINOL [Suspect]
     Active Substance: ALLOPURINOL
     Indication: Gout
     Dosage: 100 MILLIGRAM (HALF TABLET A DAY, THREE TIMES A WEEK)
     Route: 048
  4. ATORVASTATIN [Suspect]
     Active Substance: ATORVASTATIN
     Indication: Blood cholesterol abnormal
     Dosage: 80 MILLIGRAM, QD
     Route: 048
  5. CALCITRIOL [Suspect]
     Active Substance: CALCITRIOL
     Indication: Blood calcium abnormal
     Dosage: 0.25 MILLIGRAM, 3 TIMES PER WK
     Route: 048
  6. LOSARTAN [Suspect]
     Active Substance: LOSARTAN
     Indication: Blood pressure abnormal
     Dosage: 25 MILLIGRAM, QD
     Route: 065
  7. METOPROLOL [Suspect]
     Active Substance: METOPROLOL
     Indication: Product used for unknown indication
     Dosage: 50 MILLIGRAM, QD
     Route: 048

REACTIONS (8)
  - Osteitis [Not Recovered/Not Resolved]
  - Joint injury [Unknown]
  - Knee arthroplasty [Unknown]
  - Cardiac disorder [Unknown]
  - Dyspnoea [Unknown]
  - Gait disturbance [Unknown]
  - Hypoacusis [Unknown]
  - Loss of personal independence in daily activities [Unknown]
